FAERS Safety Report 25956534 (Version 1)
Quarter: 2025Q4

REPORT INFORMATION
  Report Type: Report from Study
  Country: TH (occurrence: TH)
  Receive Date: 20251024
  Receipt Date: 20251024
  Transmission Date: 20260117
  Serious: Yes (Other)
  Sender: IPSEN BIOPHARMACEUTICALS, INC.
  Company Number: TH-IPSEN Group, Research and Development-2025-19478

PATIENT
  Sex: Female

DRUGS (1)
  1. BOTULINUM TOXIN TYPE A [Suspect]
     Active Substance: BOTULINUM TOXIN TYPE A
     Indication: Facial spasm

REACTIONS (4)
  - Facial paralysis [Unknown]
  - Dry eye [Unknown]
  - Muscular weakness [Unknown]
  - Lacrimation increased [Unknown]
